FAERS Safety Report 5014999-6 (Version None)
Quarter: 2006Q2

REPORT INFORMATION
  Report Type: 
  Country: None (occurrence: None)
  Receive Date: 20060530
  Receipt Date: 20060522
  Transmission Date: 20061013
  Serious: Yes (Hospitalization, Other)
  Sender: FDA-Public Use
  Company Number: 2006-05-1836

PATIENT
  Age: 61 Year
  Sex: Female

DRUGS (3)
  1. INTRON A [Suspect]
     Indication: HEPATITIS C
     Dates: start: 19930101
  2. ROFERON-A [Suspect]
     Indication: HEPATITIS C
     Dates: start: 19930101
  3. PEGASYS [Suspect]
     Indication: HEPATITIS C

REACTIONS (9)
  - ANGIOPLASTY [None]
  - CARDIAC FAILURE CONGESTIVE [None]
  - CARDIAC PACEMAKER INSERTION [None]
  - DEPRESSION [None]
  - HYPERTENSION [None]
  - HYPOTHYROIDISM [None]
  - INSOMNIA [None]
  - PANCREATITIS [None]
  - VIRAL LOAD INCREASED [None]
